FAERS Safety Report 5065246-0 (Version None)
Quarter: 2006Q3

REPORT INFORMATION
  Report Type: 
  Country: None (occurrence: None)
  Receive Date: 20060707
  Receipt Date: 20060508
  Transmission Date: 20061208
  Serious: Yes (Other)
  Sender: FDA-Public Use
  Company Number: SUS1-2006-00509

PATIENT
  Age: 19 Year
  Sex: Female

DRUGS (4)
  1. PENTASA [Suspect]
     Indication: COLITIS ULCERATIVE
     Dosage: 750 MG, 3X/DAY:TID, ORAL
     Route: 048
     Dates: start: 20060227, end: 20060315
  2. FAMOTIDINE [Concomitant]
  3. PREDNISOLONE SODIUM PHOSPHATE [Concomitant]
  4. FERROSFERRIC OXIDE (FERROSFERRIC OXIDE) [Concomitant]

REACTIONS (1)
  - HEPATIC FUNCTION ABNORMAL [None]
